FAERS Safety Report 17202925 (Version 3)
Quarter: 2020Q1

REPORT INFORMATION
  Report Type: Spontaneous
  Country: US (occurrence: US)
  Receive Date: 20191226
  Receipt Date: 20200305
  Transmission Date: 20200409
  Serious: No
  Sender: FDA-Public Use
  Company Number: US-PFIZER INC-2019545609

PATIENT
  Age: 70 Year
  Sex: Female
  Weight: 87.98 kg

DRUGS (2)
  1. IBRANCE [Suspect]
     Active Substance: PALBOCICLIB
     Indication: DEHYDRATION
     Dosage: 125 MG, 1X/DAY
     Dates: start: 201904
  2. IBRANCE [Suspect]
     Active Substance: PALBOCICLIB
     Indication: BREAST CANCER FEMALE

REACTIONS (2)
  - Neoplasm progression [Unknown]
  - Tumour marker increased [Not Recovered/Not Resolved]
